FAERS Safety Report 8615635-X (Version None)
Quarter: 2012Q3

REPORT INFORMATION
  Report Type: 
  Country: None (occurrence: None)
  Receive Date: 20120823
  Receipt Date: 20120814
  Transmission Date: 20120928
  Serious: Yes (Hospitalization)
  Sender: FDA-Public Use
  Company Number: ES-009507513-1208ESP007100

PATIENT

DRUGS (2)
  1. BEVACIZUMAB [Suspect]
     Indication: GLIOBLASTOMA
     Dosage: 840 MG, UNK
     Route: 042
     Dates: start: 20120605, end: 20120716
  2. TEMOZOLOMIDE [Suspect]
     Indication: GLIOBLASTOMA
     Dosage: 160 MG, UNK
     Route: 048
     Dates: start: 20120605, end: 20120605

REACTIONS (1)
  - PYREXIA [None]
